FAERS Safety Report 4393785-4 (Version None)
Quarter: 2004Q3

REPORT INFORMATION
  Report Type: 
  Country: None (occurrence: None)
  Receive Date: 20040701
  Receipt Date: 20040615
  Transmission Date: 20050211
  Serious: Yes (Other)
  Sender: FDA-Public Use
  Company Number: BR-JNJFOC-20040500321

PATIENT
  Age: 34 Year
  Sex: Female

DRUGS (3)
  1. ORTHO EVRA [Suspect]
     Indication: ACNE
     Dosage: 1 DOSE(S), 3 IN 4 WEEK, TRANSDERMAL
     Route: 062
     Dates: start: 20030801, end: 20040201
  2. ORTHO EVRA [Suspect]
     Indication: MENSTRUAL DISORDER
     Dosage: 1 DOSE(S), 3 IN 4 WEEK, TRANSDERMAL
     Route: 062
     Dates: start: 20030801, end: 20040201
  3. ORTHO EVRA [Suspect]
     Indication: POLYCYSTIC OVARIES
     Dosage: 1 DOSE(S), 3 IN 4 WEEK, TRANSDERMAL
     Route: 062
     Dates: start: 20030801, end: 20040201

REACTIONS (5)
  - ARTHRALGIA [None]
  - AUTOIMMUNE DISORDER [None]
  - HEADACHE [None]
  - MALAISE [None]
  - NAUSEA [None]
